APPROVED DRUG PRODUCT: VALACYCLOVIR HYDROCHLORIDE
Active Ingredient: VALACYCLOVIR HYDROCHLORIDE
Strength: EQ 500MG BASE
Dosage Form/Route: TABLET;ORAL
Application: A078656 | Product #001
Applicant: HIKMA PHARMACEUTICALS USA INC
Approved: May 24, 2010 | RLD: No | RS: No | Type: DISCN